FAERS Safety Report 21059004 (Version 4)
Quarter: 2023Q4

REPORT INFORMATION
  Report Type: Spontaneous
  Country: US (occurrence: US)
  Receive Date: 20220708
  Receipt Date: 20231228
  Transmission Date: 20240110
  Serious: No
  Sender: FDA-Public Use
  Company Number: US-PFIZER INC-202101148665

PATIENT
  Age: 73 Year
  Sex: Female

DRUGS (2)
  1. IBRANCE [Suspect]
     Active Substance: PALBOCICLIB
     Indication: Breast cancer female
     Dosage: 125 MG
  2. IBRANCE [Suspect]
     Active Substance: PALBOCICLIB
     Dosage: 100 MG, CYCLIC(TAKE 1 TABLET BY MOUTH DAILY FOR 21 DAYS. THEN HOLD FOR 7 DAYS TO EQUAL 28 DAY CYCLE)

REACTIONS (4)
  - Full blood count abnormal [Unknown]
  - Diarrhoea [Unknown]
  - Pain [Unknown]
  - Infection [Unknown]
